FAERS Safety Report 7101129-X (Version None)
Quarter: 2010Q4

REPORT INFORMATION
  Report Type: 
  Country: None (occurrence: None)
  Receive Date: 20101105
  Receipt Date: 20101024
  Transmission Date: 20110411
  Serious: Yes (Hospitalization, Other)
  Sender: FDA-Public Use
  Company Number: 1000016539

PATIENT
  Age: 18 Year
  Sex: Female

DRUGS (4)
  1. ESCITALOPRAM [Suspect]
     Dosage: 40 MG (40 MG,ONCE),ORAL ; ORAL
     Route: 048
     Dates: start: 20100923, end: 20100923
  2. LEVOTHYROXINE SODIUM [Suspect]
     Dosage: (150-200 MCG, ONCE),ORAL
     Route: 048
     Dates: start: 20100923, end: 20100923
  3. BENURON (PARACETAMOL) (500 MILLIGRAM, TABLETS) [Suspect]
     Dosage: (1500 MG,ONCE),ORAL
     Route: 048
     Dates: start: 20100923, end: 20100923
  4. VALETTE (CERTOSTAT) (TABLETS) [Suspect]
     Dosage: (1 DOSAGE FORMS,ONCE),ORAL
     Route: 048
     Dates: start: 20100923, end: 20100923

REACTIONS (6)
  - DEPRESSION [None]
  - DRUG ABUSE [None]
  - INTENTIONAL OVERDOSE [None]
  - NAUSEA [None]
  - POISONING [None]
  - RESTLESSNESS [None]
